FAERS Safety Report 10032177 (Version 2)
Quarter: 2014Q2

REPORT INFORMATION
  Report Type: Spontaneous
  Country: US (occurrence: US)
  Receive Date: 20140324
  Receipt Date: 20140429
  Transmission Date: 20141212
  Serious: Yes (Life-Threatening)
  Sender: FDA-Public Use
  Company Number: PHEH2014US005475

PATIENT
  Sex: Female

DRUGS (14)
  1. VIVELLE DOT [Suspect]
     Dosage: UNK UKN, UNK
     Route: 062
     Dates: start: 2010
  2. VIVELLE DOT [Suspect]
     Dosage: 0.0375 MG
     Route: 062
  3. DIOVAN [Concomitant]
     Dosage: 320 MG, QD
  4. AMLODIPINE [Concomitant]
     Dosage: 10 MG, QD
  5. METFORMIN [Concomitant]
     Dosage: 1000 MG, BID
  6. BABY ASPIRIN [Concomitant]
     Dosage: 81 MG, QD
  7. ZETIA [Concomitant]
     Dosage: 10 MG, QD
  8. NIACIN [Concomitant]
     Dosage: 500 MG, UNK
  9. VITAMIN D3 [Concomitant]
     Dosage: 2000 IU, QD
  10. SYNTHROID [Concomitant]
     Dosage: 37.5 MG, QD
  11. ZYRTEC [Concomitant]
     Dosage: 10 MG, HS
  12. VITAMIN B6 [Concomitant]
     Dosage: 100 MG, QD
  13. VITAMIN B12 [Concomitant]
     Dosage: 1000 MG, QD
  14. SOTALOL [Concomitant]
     Dosage: 80 MG, BID

REACTIONS (2)
  - Lymphadenopathy [Unknown]
  - Wrong technique in drug usage process [Unknown]
